FAERS Safety Report 9364227 (Version 1)
Quarter: 2013Q2

REPORT INFORMATION
  Report Type: Spontaneous
  Country: FR (occurrence: FR)
  Receive Date: 20130624
  Receipt Date: 20130624
  Transmission Date: 20140414
  Serious: Yes (Hospitalization)
  Sender: FDA-Public Use
  Company Number: FR-TEVA-414242ISR

PATIENT
  Age: 78 Year
  Sex: Female

DRUGS (7)
  1. FUROSEMIDE TEVA 40 MG [Suspect]
     Indication: OEDEMA
     Dosage: 80 MILLIGRAM DAILY;
  2. SELOKEN [Concomitant]
  3. NOVONORM [Concomitant]
  4. LANTUS [Concomitant]
  5. LOPRESSOR [Concomitant]
  6. COUMADINE [Concomitant]
  7. SERESTA [Concomitant]

REACTIONS (1)
  - Respiratory distress [Unknown]
